FAERS Safety Report 15165705 (Version 1)
Quarter: 2018Q3

REPORT INFORMATION
  Report Type: Report from Study
  Country: IT (occurrence: IT)
  Receive Date: 20180719
  Receipt Date: 20180719
  Transmission Date: 20181010
  Serious: Yes (Other)
  Sender: FDA-Public Use
  Company Number: IT-PFIZER INC-2018288168

PATIENT
  Age: 82 Year
  Sex: Female

DRUGS (8)
  1. BISOPROLOL HEMIFUMARATE [Concomitant]
     Active Substance: BISOPROLOL FUMARATE
  2. NORVASC [Concomitant]
     Active Substance: AMLODIPINE BESYLATE
     Dosage: UNK
  3. CARDIOASPIRIN [Concomitant]
     Active Substance: ASPIRIN
     Dosage: UNK
  4. LANSOPRAZOLE. [Concomitant]
     Active Substance: LANSOPRAZOLE
  5. TORVAST [Concomitant]
     Active Substance: ATORVASTATIN
     Dosage: UNK
  6. HALCION [Suspect]
     Active Substance: TRIAZOLAM
     Dosage: 2 DF, SINGLE
     Route: 048
     Dates: start: 20180521, end: 20180521
  7. SAMYR /00882301/ [Concomitant]
     Active Substance: ADEMETIONINE
     Dosage: UNK
  8. PAROXETINE. [Concomitant]
     Active Substance: PAROXETINE

REACTIONS (4)
  - Dysarthria [Recovering/Resolving]
  - Drug administration error [Recovering/Resolving]
  - Toxicity to various agents [Recovering/Resolving]
  - Confusional state [Recovering/Resolving]

NARRATIVE: CASE EVENT DATE: 20180521
